FAERS Safety Report 7031625-5 (Version None)
Quarter: 2010Q4

REPORT INFORMATION
  Report Type: 
  Country: None (occurrence: None)
  Receive Date: 20101006
  Receipt Date: 20101006
  Transmission Date: 20110411
  Serious: Yes (Hospitalization, Other)
  Sender: FDA-Public Use
  Company Number: None

PATIENT
  Sex: Male

DRUGS (1)
  1. REQUIP [Suspect]
     Indication: DOPAMINE DYSREGULATION SYNDROME
     Dosage: MULTIPLE FIRST USE ONCE A DAY BY MOUTH FOR THREE WEEKS
     Route: 048

REACTIONS (2)
  - DOPAMINE DYSREGULATION SYNDROME [None]
  - MANIA [None]
